FAERS Safety Report 9013056 (Version 2)
Quarter: 2013Q3

REPORT INFORMATION
  Report Type: Spontaneous
  Country: US (occurrence: US)
  Receive Date: 20130114
  Receipt Date: 20130828
  Transmission Date: 20140515
  Serious: Yes (Other)
  Sender: FDA-Public Use
  Company Number: CHPA2011US017630

PATIENT
  Age: 85 Year
  Sex: Male

DRUGS (5)
  1. VOLTAREN GEL [Suspect]
     Indication: ARTHRITIS
     Dosage: UNK, BID
     Route: 061
  2. VOLTAREN GEL [Suspect]
     Indication: MUSCULOSKELETAL DISCOMFORT
  3. TYLENOL W/CODEINE [Suspect]
     Indication: ARTHRALGIA
     Dosage: UNK, UNK
     Route: 065
  4. COUMADIN ^ENDO^ [Concomitant]
     Dosage: UNK
  5. ANTIHYPERTENSIVES [Concomitant]
     Indication: CARDIAC DISORDER

REACTIONS (9)
  - Wrist fracture [Recovering/Resolving]
  - Pain [Unknown]
  - Constipation [Recovered/Resolved]
  - Pain in extremity [Not Recovered/Not Resolved]
  - Therapeutic response unexpected [Unknown]
  - Drug administered at inappropriate site [Unknown]
  - Wrong technique in drug usage process [Unknown]
  - Underdose [Unknown]
  - Therapeutic response decreased [Unknown]
